FAERS Safety Report 12011689 (Version 2)
Quarter: 2016Q1

REPORT INFORMATION
  Report Type: Report from Study
  Country: JP (occurrence: JP)
  Receive Date: 20160205
  Receipt Date: 20160323
  Transmission Date: 20160526
  Serious: Yes (Hospitalization, Other)
  Sender: FDA-Public Use
  Company Number: JP-ASTELLAS-2009JP004431

PATIENT
  Age: 59 Year
  Sex: Female
  Weight: 58 kg

DRUGS (63)
  1. LASIX [Concomitant]
     Active Substance: FUROSEMIDE
     Route: 048
     Dates: start: 20140708, end: 20150525
  2. LIPITOR [Concomitant]
     Active Substance: ATORVASTATIN CALCIUM
     Route: 048
     Dates: end: 20080724
  3. FOSAMAC [Concomitant]
     Active Substance: ALENDRONATE SODIUM
     Route: 048
  4. TAKEPRON [Concomitant]
     Active Substance: LANSOPRAZOLE
     Indication: ENTEROCOLITIS
     Route: 048
     Dates: start: 20070912, end: 20070920
  5. CARBOCAINE [Concomitant]
     Active Substance: MEPIVACAINE HYDROCHLORIDE
     Indication: INTERVERTEBRAL DISC PROTRUSION
     Route: 065
     Dates: start: 20090826, end: 20090903
  6. MIRCERA [Concomitant]
     Active Substance: METHOXY POLYETHYLENE GLYCOL-EPOETIN BETA
     Route: 065
     Dates: start: 20121102, end: 20121102
  7. TACROLIMUS. [Suspect]
     Active Substance: TACROLIMUS
     Route: 048
     Dates: start: 20120525
  8. PREDNISOLONE. [Suspect]
     Active Substance: PREDNISOLONE
     Indication: LUPUS NEPHRITIS
     Route: 048
  9. BLOPRESS [Concomitant]
     Active Substance: CANDESARTAN CILEXETIL
     Indication: HYPERTENSION
     Route: 048
     Dates: end: 20150803
  10. CARDENALIN [Concomitant]
     Active Substance: DOXAZOSIN MESYLATE
     Indication: HYPERTENSION
     Route: 048
     Dates: start: 20080627, end: 20130613
  11. MUCODYNE [Concomitant]
     Active Substance: CARBOCYSTEINE
     Indication: PITUITARY TUMOUR BENIGN
     Route: 048
     Dates: start: 20131002, end: 20140306
  12. BAKTAR [Concomitant]
     Active Substance: SULFAMETHOXAZOLE\TRIMETHOPRIM
     Indication: PROPHYLAXIS
     Dosage: 0.3 G, ONCE DAILY
     Route: 048
     Dates: start: 20140926, end: 20150803
  13. INFLUENZA HA VACCINE [Concomitant]
     Active Substance: INFLUENZA VIRUS VACCINE
     Indication: PROPHYLAXIS
     Dosage: 0.5 ML, ONCE DAILY
     Route: 065
     Dates: start: 20141104, end: 20141104
  14. GASTER [Concomitant]
     Active Substance: FAMOTIDINE
     Route: 048
     Dates: end: 20150316
  15. CEFZON [Concomitant]
     Active Substance: CEFDINIR
     Indication: UPPER RESPIRATORY TRACT INFLAMMATION
     Route: 048
     Dates: start: 20100528, end: 20100601
  16. PRECIPITATED CALCIUM CARBONATE [Concomitant]
     Active Substance: CALCIUM CARBONATE
     Route: 048
     Dates: start: 20090821
  17. COCARL [Concomitant]
     Active Substance: ACETAMINOPHEN
     Indication: INTERVERTEBRAL DISC PROTRUSION
     Route: 048
     Dates: start: 20090821, end: 20090917
  18. MIRCERA [Concomitant]
     Active Substance: METHOXY POLYETHYLENE GLYCOL-EPOETIN BETA
     Route: 065
     Dates: start: 20130809, end: 20130913
  19. EQUA [Concomitant]
     Active Substance: VILDAGLIPTIN
     Route: 048
     Dates: start: 20130222
  20. BREDININ [Concomitant]
     Active Substance: MIZORIBINE
     Route: 048
     Dates: start: 20130222, end: 20130613
  21. CELLCEPT [Concomitant]
     Active Substance: MYCOPHENOLATE MOFETIL\MYCOPHENOLATE MOFETIL HYDROCHLORIDE
     Indication: LUPUS NEPHRITIS
     Route: 048
     Dates: start: 20130614, end: 20140306
  22. CELLCEPT [Concomitant]
     Active Substance: MYCOPHENOLATE MOFETIL\MYCOPHENOLATE MOFETIL HYDROCHLORIDE
     Route: 048
     Dates: start: 20140307, end: 20140901
  23. CORTRIL [Concomitant]
     Active Substance: HYDROCORTISONE
     Route: 048
     Dates: start: 20130903, end: 20130905
  24. METHYCOBAL [Concomitant]
     Active Substance: METHYLCOBALAMIN
     Indication: PAROSMIA
     Route: 048
     Dates: start: 20131216, end: 20140306
  25. TACROLIMUS. [Suspect]
     Active Substance: TACROLIMUS
     Route: 048
     Dates: start: 20120518, end: 20120524
  26. GASTER [Concomitant]
     Active Substance: FAMOTIDINE
     Indication: PROPHYLAXIS
     Route: 048
  27. ZYLORIC [Concomitant]
     Active Substance: ALLOPURINOL
     Indication: HYPERURICAEMIA
     Route: 048
     Dates: start: 20121102, end: 20130221
  28. ATELEC [Concomitant]
     Active Substance: CILNIDIPINE
     Indication: HYPERTENSION
     Route: 048
     Dates: start: 20080215, end: 20080605
  29. LEPETAN [Concomitant]
     Active Substance: BUPRENORPHINE HYDROCHLORIDE
     Indication: INTERVERTEBRAL DISC PROTRUSION
     Dosage: 0.6 MG, ONCE DAILY
     Route: 054
     Dates: start: 20090821, end: 20090917
  30. SEISHOKU [Concomitant]
     Active Substance: SODIUM CHLORIDE
     Indication: INTERVERTEBRAL DISC PROTRUSION
     Route: 065
     Dates: start: 20090826, end: 20090903
  31. CELLCEPT [Concomitant]
     Active Substance: MYCOPHENOLATE MOFETIL\MYCOPHENOLATE MOFETIL HYDROCHLORIDE
     Route: 048
     Dates: start: 20140902
  32. ADONA                              /00056903/ [Concomitant]
     Active Substance: CARBAZOCHROME SODIUM SULFONATE
     Indication: PITUITARY TUMOUR BENIGN
     Route: 048
     Dates: start: 20131202, end: 20131208
  33. RINDERON                           /00008501/ [Concomitant]
     Active Substance: BETAMETHASONE
     Indication: PAROSMIA
     Dosage: UNK UNK, UNKNOWN FREQ.
     Route: 065
     Dates: start: 20131216, end: 20140306
  34. LASIX [Concomitant]
     Active Substance: FUROSEMIDE
     Indication: LUPUS NEPHRITIS
     Route: 048
     Dates: end: 20140707
  35. ZYLORIC [Concomitant]
     Active Substance: ALLOPURINOL
     Route: 048
     Dates: start: 20130222, end: 20150316
  36. MOHRUS [Concomitant]
     Active Substance: KETOPROFEN
     Indication: INTERVERTEBRAL DISC PROTRUSION
     Route: 061
     Dates: start: 20090824, end: 20090917
  37. XYLOCAINE [Concomitant]
     Active Substance: LIDOCAINE HYDROCHLORIDE
     Indication: INTERVERTEBRAL DISC PROTRUSION
     Route: 065
     Dates: start: 20090826, end: 20090903
  38. MIRCERA [Concomitant]
     Active Substance: METHOXY POLYETHYLENE GLYCOL-EPOETIN BETA
     Indication: NEPHROGENIC ANAEMIA
     Route: 065
     Dates: start: 20120518, end: 20120518
  39. MIRCERA [Concomitant]
     Active Substance: METHOXY POLYETHYLENE GLYCOL-EPOETIN BETA
     Route: 065
     Dates: start: 20120907, end: 20120921
  40. MIRCERA [Concomitant]
     Active Substance: METHOXY POLYETHYLENE GLYCOL-EPOETIN BETA
     Route: 065
     Dates: start: 20130129, end: 20130129
  41. CORTRIL [Concomitant]
     Active Substance: HYDROCORTISONE
     Indication: HORMONE REPLACEMENT THERAPY
     Route: 048
     Dates: start: 20130830, end: 20130831
  42. FLOMOX                             /01418603/ [Concomitant]
     Indication: PITUITARY TUMOUR BENIGN
     Route: 048
     Dates: start: 20131002, end: 20131208
  43. FUROSEMIDE. [Concomitant]
     Active Substance: FUROSEMIDE
     Indication: LUPUS NEPHRITIS
     Route: 048
     Dates: start: 20150526
  44. FOSAMAC [Concomitant]
     Active Substance: ALENDRONATE SODIUM
     Indication: OSTEOPOROSIS
     Route: 048
  45. PRECIPITATED CALCIUM CARBONATE [Concomitant]
     Active Substance: CALCIUM CARBONATE
     Indication: BONE DENSITY DECREASED
     Route: 048
     Dates: start: 20090306, end: 20090820
  46. EQUA [Concomitant]
     Active Substance: VILDAGLIPTIN
     Indication: DIABETES MELLITUS
     Route: 048
     Dates: start: 20120921, end: 20130221
  47. LOXONIN [Concomitant]
     Active Substance: LOXOPROFEN SODIUM
     Indication: PITUITARY TUMOUR BENIGN
     Route: 048
     Dates: start: 20131002, end: 20131016
  48. TACROLIMUS. [Suspect]
     Active Substance: TACROLIMUS
     Indication: LUPUS NEPHRITIS
     Route: 048
     Dates: start: 20070803, end: 20080918
  49. TACROLIMUS. [Suspect]
     Active Substance: TACROLIMUS
     Route: 048
     Dates: start: 20080919, end: 20120517
  50. LIPITOR [Concomitant]
     Active Substance: ATORVASTATIN CALCIUM
     Indication: PRODUCT USED FOR UNKNOWN INDICATION
     Route: 048
  51. BAKTAR [Concomitant]
     Active Substance: SULFAMETHOXAZOLE\TRIMETHOPRIM
     Indication: ENTEROCOLITIS
     Route: 048
     Dates: start: 20070912, end: 20070920
  52. COCARL [Concomitant]
     Active Substance: ACETAMINOPHEN
     Indication: UPPER RESPIRATORY TRACT INFLAMMATION
     Route: 048
     Dates: start: 20100528, end: 20100601
  53. MEIACT [Concomitant]
     Active Substance: CEFDITOREN PIVOXIL
     Indication: PITUITARY TUMOUR BENIGN
     Route: 048
     Dates: start: 20140206, end: 20140211
  54. ZYLORIC [Concomitant]
     Active Substance: ALLOPURINOL
     Indication: HYPERTENSION
     Route: 048
     Dates: end: 20121101
  55. LIPITOR [Concomitant]
     Active Substance: ATORVASTATIN CALCIUM
     Route: 048
     Dates: start: 20080725, end: 20150803
  56. ATELEC [Concomitant]
     Active Substance: CILNIDIPINE
     Route: 048
     Dates: start: 20080606, end: 20150803
  57. CEFZON [Concomitant]
     Active Substance: CEFDINIR
     Indication: CYSTITIS
     Route: 048
     Dates: start: 20090123, end: 20090128
  58. ANAPEINE [Concomitant]
     Active Substance: ROPIVACAINE HYDROCHLORIDE
     Indication: INTERVERTEBRAL DISC PROTRUSION
     Route: 065
     Dates: start: 20090826, end: 20090903
  59. MIRCERA [Concomitant]
     Active Substance: METHOXY POLYETHYLENE GLYCOL-EPOETIN BETA
     Route: 065
     Dates: start: 20121005, end: 20121005
  60. BREDININ [Concomitant]
     Active Substance: MIZORIBINE
     Indication: LUPUS NEPHRITIS
     Route: 048
     Dates: start: 20121005, end: 20130221
  61. CORTRIL [Concomitant]
     Active Substance: HYDROCORTISONE
     Route: 048
     Dates: start: 20130901, end: 20130902
  62. TRANSAMIN [Concomitant]
     Active Substance: TRANEXAMIC ACID
     Indication: PITUITARY TUMOUR BENIGN
     Route: 048
     Dates: start: 20131202, end: 20131205
  63. FAMOTIDINE. [Concomitant]
     Active Substance: FAMOTIDINE
     Indication: PROPHYLAXIS
     Route: 048
     Dates: start: 20150317

REACTIONS (13)
  - Anomalous arrangement of pancreaticobiliary duct [Recovered/Resolved]
  - Diabetes mellitus [Not Recovered/Not Resolved]
  - Nephrogenic anaemia [Recovering/Resolving]
  - Blood glucose increased [Recovering/Resolving]
  - Intervertebral disc protrusion [Recovering/Resolving]
  - Enterocolitis [Recovered/Resolved]
  - Cataract [Recovered/Resolved]
  - Cystitis [Recovered/Resolved]
  - Parosmia [Recovering/Resolving]
  - Pituitary tumour benign [Recovered/Resolved]
  - Bone density decreased [Recovering/Resolving]
  - Hypertension [Recovered/Resolved]
  - Upper respiratory tract inflammation [Recovered/Resolved]

NARRATIVE: CASE EVENT DATE: 20070909
